FAERS Safety Report 21458155 (Version 5)
Quarter: 2024Q1

REPORT INFORMATION
  Report Type: Report from Study
  Country: KR (occurrence: KR)
  Receive Date: 20221014
  Receipt Date: 20240104
  Transmission Date: 20240410
  Serious: Yes (Hospitalization)
  Sender: FDA-Public Use
  Company Number: KR-PFIZER INC-PV202200081207

PATIENT
  Age: 70 Year
  Sex: Female
  Weight: 63.3 kg

DRUGS (4)
  1. VIZIMPRO [Suspect]
     Active Substance: DACOMITINIB
     Indication: Non-small cell lung cancer
     Dosage: 45 MG, 1X/DAY (VIZIMPRO)
     Route: 048
     Dates: start: 20220915, end: 20221005
  2. VIZIMPRO [Suspect]
     Active Substance: DACOMITINIB
     Dosage: 30 MG, 1X/DAY (VIZIMPRO)
     Route: 048
     Dates: start: 20221006, end: 20221009
  3. DOXYCYCLINE [Suspect]
     Active Substance: DOXYCYCLINE
     Indication: Prophylaxis
     Dosage: 100 MG
     Route: 048
     Dates: start: 20221006, end: 20221009
  4. PINAVERIUM BROMIDE [Concomitant]
     Active Substance: PINAVERIUM BROMIDE
     Indication: Diarrhoea
     Dosage: UNK, (ILYANG)
     Route: 048
     Dates: start: 20221006, end: 20221009

REACTIONS (1)
  - Stevens-Johnson syndrome [Recovering/Resolving]

NARRATIVE: CASE EVENT DATE: 20221006
